FAERS Safety Report 19707183 (Version 1)
Quarter: 2021Q3

REPORT INFORMATION
  Report Type: Spontaneous
  Country: JP (occurrence: JP)
  Receive Date: 20210817
  Receipt Date: 20210817
  Transmission Date: 20211014
  Serious: No
  Sender: FDA-Public Use
  Company Number: JP-JNJFOC-20210824400

PATIENT

DRUGS (6)
  1. DURAGESIC [Concomitant]
     Active Substance: FENTANYL
  2. DURAGESIC [Concomitant]
     Active Substance: FENTANYL
  3. DURAGESIC [Concomitant]
     Active Substance: FENTANYL
  4. DUROTEP [Suspect]
     Active Substance: FENTANYL
     Indication: PRODUCT USED FOR UNKNOWN INDICATION
     Dosage: UNKNOWN
     Route: 062
  5. DUROTEP [Suspect]
     Active Substance: FENTANYL
  6. DUROTEP [Suspect]
     Active Substance: FENTANYL

REACTIONS (1)
  - Product adhesion issue [Unknown]
